FAERS Safety Report 4734833-9 (Version None)
Quarter: 2005Q3

REPORT INFORMATION
  Report Type: 
  Country: None (occurrence: None)
  Receive Date: 20050729
  Receipt Date: 20050712
  Transmission Date: 20060218
  Serious: Yes (Other)
  Sender: FDA-Public Use
  Company Number: USA0507102533

PATIENT
  Age: 68 Year
  Sex: Female

DRUGS (5)
  1. CYMBALTA [Suspect]
     Indication: NEUROPATHY
     Dosage: 60 MG
     Dates: start: 20050601, end: 20050701
  2. HUMULIN  /00646001/ (INSULIN HUMAN) [Concomitant]
  3. LANOXIN (DIGOXIN /00017701/) [Concomitant]
  4. ASPIRIN [Concomitant]
  5. NEURONTIN [Concomitant]

REACTIONS (7)
  - FALL [None]
  - HEAD INJURY [None]
  - HEADACHE [None]
  - LIMB INJURY [None]
  - LOSS OF CONSCIOUSNESS [None]
  - RIB FRACTURE [None]
  - SKELETAL INJURY [None]
